FAERS Safety Report 24292140 (Version 1)
Quarter: 2024Q3

REPORT INFORMATION
  Report Type: Spontaneous
  Country: US (occurrence: None)
  Receive Date: 20240906
  Receipt Date: 20240906
  Transmission Date: 20241016
  Serious: No
  Sender: DOMPE FARMACEUTICI
  Company Number: US-FARMAPROD-202308-202307-2127

PATIENT
  Age: 78 Year
  Sex: Female

DRUGS (13)
  1. OXERVATE [Suspect]
     Active Substance: CENEGERMIN-BKBJ
     Indication: Neurotrophic keratopathy
     Route: 047
     Dates: start: 20230706
  2. VITAMIN D3 [Concomitant]
     Active Substance: CHOLECALCIFEROL
  3. FISH OIL [Concomitant]
     Active Substance: FISH OIL
     Dosage: 100 -160 MG
  4. COENZYME Q10 [Concomitant]
     Active Substance: DIETARY SUPPLEMENT\UBIDECARENONE
  5. VITAMINS [Concomitant]
     Active Substance: VITAMINS
  6. TRIAMTERENE-HYDROCHLOROTHIAZID [Concomitant]
  7. ASCORBIC ACID [Concomitant]
     Active Substance: ASCORBIC ACID
  8. PANTOPRAZOLE SODIUM [Concomitant]
     Active Substance: PANTOPRAZOLE SODIUM
  9. TRAZODONE HCL [Concomitant]
     Active Substance: TRAZODONE HYDROCHLORIDE
  10. BIOTIN [Concomitant]
     Active Substance: BIOTIN
  11. PRAVACHOL [Concomitant]
     Active Substance: PRAVASTATIN SODIUM
  12. ASPIRIN [Concomitant]
     Active Substance: ASPIRIN
  13. CALCIUM [Concomitant]
     Active Substance: CALCIUM

REACTIONS (3)
  - Drug hypersensitivity [Unknown]
  - Product storage error [Recovered/Resolved]
  - Intentional product misuse [Unknown]
